FAERS Safety Report 20786775 (Version 1)
Quarter: 2022Q2

REPORT INFORMATION
  Report Type: Report from Study
  Country: US (occurrence: US)
  Receive Date: 20220505
  Receipt Date: 20220505
  Transmission Date: 20220721
  Serious: No
  Sender: FDA-Public Use
  Company Number: US-NOVARTISTESTPH-NVSC2022US102423

PATIENT
  Age: 50 Year
  Sex: Male

DRUGS (1)
  1. ENTRESTO [Suspect]
     Active Substance: SACUBITRIL\VALSARTAN
     Indication: Eczema
     Dosage: UNK
     Route: 065

REACTIONS (2)
  - Eczema [Unknown]
  - Product use in unapproved indication [Unknown]

NARRATIVE: CASE EVENT DATE: 20220402
